FAERS Safety Report 8828635 (Version 2)
Quarter: 2012Q4

REPORT INFORMATION
  Report Type: 
  Country: DE (occurrence: DE)
  Receive Date: 20121005
  Receipt Date: 20121109
  Transmission Date: 20130627
  Serious: Yes (Hospitalization)
  Sender: FDA-Public Use
  Company Number: DE-SANOFI-AVENTIS-2012SA071883

PATIENT
  Age: 41 Year
  Sex: Female

DRUGS (2)
  1. NOVALGIN [Suspect]
     Indication: PAIN
     Route: 048
     Dates: start: 201112, end: 201112
  2. CLEXANE [Suspect]
     Indication: THROMBOSIS PROPHYLAXIS
     Route: 051
     Dates: start: 201112, end: 201112

REACTIONS (1)
  - Asthma [Recovered/Resolved]
